FAERS Safety Report 6574540-3 (Version None)
Quarter: 2010Q1

REPORT INFORMATION
  Report Type: 
  Country: None (occurrence: None)
  Receive Date: 20100209
  Receipt Date: 20090629
  Transmission Date: 20100710
  Serious: No
  Sender: FDA-Public Use
  Company Number: A0794319A

PATIENT
  Age: 37 Year
  Sex: Female

DRUGS (3)
  1. PAXIL [Suspect]
     Indication: MAJOR DEPRESSION
     Dosage: 12.5MG PER DAY
     Route: 048
     Dates: start: 20090608
  2. ZYPREXA [Concomitant]
  3. DIAZEPAM [Concomitant]

REACTIONS (1)
  - DRUG INEFFECTIVE [None]
